FAERS Safety Report 20633489 (Version 10)
Quarter: 2025Q4

REPORT INFORMATION
  Report Type: Report from Study
  Country: US (occurrence: US)
  Receive Date: 20220324
  Receipt Date: 20251031
  Transmission Date: 20260117
  Serious: Yes (Hospitalization, Other)
  Sender: NOVARTIS
  Company Number: US-NOVARTISTESTPH-NVSC2022US067432

PATIENT
  Sex: Male

DRUGS (4)
  1. SCEMBLIX [Suspect]
     Active Substance: ASCIMINIB HYDROCHLORIDE
     Indication: Philadelphia positive chronic myeloid leukaemia
     Dosage: 40 MG, BID
     Route: 048
  2. SCEMBLIX [Suspect]
     Active Substance: ASCIMINIB HYDROCHLORIDE
     Dosage: 40 MG, PRN (AS NEEDED)
     Route: 048
  3. SCEMBLIX [Suspect]
     Active Substance: ASCIMINIB HYDROCHLORIDE
     Dosage: 20 MG, TID (THREE TIMES A DAY)
     Route: 048
  4. SCEMBLIX [Suspect]
     Active Substance: ASCIMINIB HYDROCHLORIDE
     Dosage: 40 MG, BID (2 TABLETS BY MOUTH DAILY)
     Route: 048
     Dates: start: 20240716

REACTIONS (10)
  - Vomiting [Unknown]
  - Nausea [Unknown]
  - Philadelphia positive chronic myeloid leukaemia [Unknown]
  - Malignant neoplasm progression [Unknown]
  - Arterial occlusive disease [Unknown]
  - Pruritus [Unknown]
  - Thirst [Unknown]
  - Dizziness [Unknown]
  - Ill-defined disorder [Unknown]
  - Heart rate abnormal [Unknown]
